FAERS Safety Report 5522698-7 (Version None)
Quarter: 2007Q4

REPORT INFORMATION
  Report Type: 
  Country: None (occurrence: None)
  Receive Date: 20071120
  Receipt Date: 20071114
  Transmission Date: 20080405
  Serious: Yes (Other)
  Sender: FDA-Public Use
  Company Number: US-SHR-US-2007-002869

PATIENT
  Age: 53 Year
  Sex: Female

DRUGS (5)
  1. BETASERON [Suspect]
     Indication: MULTIPLE SCLEROSIS
     Dosage: UNK, UNK
     Route: 058
     Dates: start: 19990622, end: 20010101
  2. BETASERON [Suspect]
     Dosage: UNK, UNK
     Route: 058
     Dates: start: 20030601, end: 20031101
  3. BETASERON [Suspect]
     Dosage: UNK, UNK
     Route: 058
     Dates: start: 20041012, end: 20060702
  4. BETASERON [Suspect]
     Dosage: UNK, UNK
     Route: 058
     Dates: start: 20060807, end: 20061204
  5. BETASERON [Suspect]
     Dosage: 8 MIU, EVERY 2D
     Route: 058
     Dates: start: 20070112

REACTIONS (2)
  - OEDEMA PERIPHERAL [None]
  - SKIN ULCER [None]
